FAERS Safety Report 10510022 (Version 1)
Quarter: 2014Q4

REPORT INFORMATION
  Report Type: Spontaneous
  Country: US (occurrence: None)
  Receive Date: 20141009
  Receipt Date: 20141009
  Transmission Date: 20150528
  Serious: Yes (Hospitalization)
  Sender: FDA-Public Use
  Company Number: None

PATIENT
  Age: 72 Year
  Sex: Female
  Weight: 44.55 kg

DRUGS (1)
  1. TAXOL [Suspect]
     Active Substance: PACLITAXEL
     Dates: end: 20140923

REACTIONS (5)
  - Small intestinal obstruction [None]
  - Blood magnesium decreased [None]
  - Hydronephrosis [None]
  - Blood glucose increased [None]
  - Blood potassium decreased [None]

NARRATIVE: CASE EVENT DATE: 20141006
